FAERS Safety Report 20608594 (Version 1)
Quarter: 2022Q1

REPORT INFORMATION
  Report Type: Spontaneous
  Country: CN (occurrence: CN)
  Receive Date: 20220317
  Receipt Date: 20220317
  Transmission Date: 20220423
  Serious: Yes (Hospitalization, Other)
  Sender: FDA-Public Use
  Company Number: CN-Accord-257240

PATIENT
  Age: 46 Year
  Sex: Male

DRUGS (4)
  1. CLONAZEPAM [Suspect]
     Active Substance: CLONAZEPAM
     Indication: Insomnia
     Dosage: FROM 4 TABLETS TO 13 TABLETS (2, 26 MG/NIGHT)
     Dates: start: 2012
  2. CLOZAPINE [Interacting]
     Active Substance: CLOZAPINE
     Indication: Schizophrenia
     Dosage: (150 MG PER DAY), CLZ GRADUALLY INCREASED TO 6-14 TABLETS (25 MG PER TABLET, 500 MG/DAY).
     Dates: start: 2009
  3. RIFAMPIN [Interacting]
     Active Substance: RIFAMPIN
     Indication: Tuberculosis
     Dates: end: 202104
  4. ALPRAZOLAM [Concomitant]
     Active Substance: ALPRAZOLAM
     Indication: Insomnia
     Dosage: GRADUALLY INCREASING THE DOSE FROM 1 TABLET TO 5 TABLETS (0.4 MG PER TABLET, 2 MG/NIGHT)

REACTIONS (11)
  - Drug abuse [Unknown]
  - Dysarthria [Unknown]
  - Withdrawal syndrome [Unknown]
  - Hyperhidrosis [Unknown]
  - Palpitations [Unknown]
  - Drug dependence [Unknown]
  - Overdose [Unknown]
  - Drug interaction [Unknown]
  - Tremor [Unknown]
  - Anxiety [Recovered/Resolved]
  - Poor quality sleep [Unknown]
